FAERS Safety Report 5683750-9 (Version None)
Quarter: 2008Q1

REPORT INFORMATION
  Report Type: 
  Country: None (occurrence: None)
  Receive Date: 20080328
  Receipt Date: 20061115
  Transmission Date: 20080703
  Serious: Yes (Hospitalization)
  Sender: FDA-Public Use
  Company Number: US-BAYER-US-2006-025894

PATIENT
  Age: 43 Year
  Sex: Female
  Weight: 64 kg

DRUGS (3)
  1. MIRENA [Suspect]
     Indication: CONTRACEPTION
     Route: 015
     Dates: start: 20060831, end: 20060905
  2. CYMBALTA [Concomitant]
     Dosage: UNIT DOSE: 60 MG
  3. VISTARIL [Concomitant]
     Dosage: UNIT DOSE: 50 MG

REACTIONS (2)
  - PROCEDURAL PAIN [None]
  - UTERINE RUPTURE [None]
